FAERS Safety Report 6784853-8 (Version None)
Quarter: 2010Q2

REPORT INFORMATION
  Report Type: 
  Country: None (occurrence: None)
  Receive Date: 20100618
  Receipt Date: 20100611
  Transmission Date: 20101027
  Serious: Yes (Other)
  Sender: FDA-Public Use
  Company Number: 101335

PATIENT
  Age: 47 Year
  Sex: Female

DRUGS (1)
  1. METHOTREXATE [Suspect]
     Dosage: 0.8ML SUBCUTANEOUSLY ONE WEEKLY
     Route: 058

REACTIONS (1)
  - WRONG TECHNIQUE IN DRUG USAGE PROCESS [None]
